FAERS Safety Report 6272227-8 (Version None)
Quarter: 2009Q3

REPORT INFORMATION
  Report Type: 
  Country: None (occurrence: None)
  Receive Date: 20090717
  Receipt Date: 20090603
  Transmission Date: 20100115
  Serious: Yes (Hospitalization, Other)
  Sender: FDA-Public Use
  Company Number: US-NAPPMUNDI-USA-2009-0038745

PATIENT
  Sex: Female
  Weight: 72.562 kg

DRUGS (2)
  1. OXYCONTIN [Suspect]
     Indication: ANALGESIA
     Dosage: 40 MG, BID
     Dates: start: 19970701, end: 20010225
  2. OXYCONTIN [Suspect]
     Indication: BACK PAIN

REACTIONS (2)
  - CARDIAC VALVE DISEASE [None]
  - DRUG WITHDRAWAL SYNDROME [None]
